FAERS Safety Report 8953981 (Version 1)
Quarter: 2012Q4

REPORT INFORMATION
  Report Type: 
  Country: US (occurrence: US)
  Receive Date: 20121206
  Receipt Date: 20121206
  Transmission Date: 20130627
  Serious: No
  Sender: FDA-Public Use
  Company Number: US-009507513-1212USA001738

PATIENT
  Age: 58 Year
  Sex: Male

DRUGS (2)
  1. PEGINTRON [Suspect]
     Indication: HEPATITIS C
     Dosage: 0.4 ml, qw
     Dates: start: 20121203
  2. RIBASPHERE [Suspect]

REACTIONS (3)
  - Influenza like illness [Recovering/Resolving]
  - Myalgia [Recovering/Resolving]
  - Dizziness [Recovering/Resolving]
